FAERS Safety Report 9014356 (Version 1)
Quarter: 2013Q1

REPORT INFORMATION
  Report Type: Spontaneous
  Country: US (occurrence: US)
  Receive Date: 20130115
  Receipt Date: 20130115
  Transmission Date: 20140127
  Serious: No
  Sender: FDA-Public Use
  Company Number: US-PFIZER INC-2013014642

PATIENT
  Sex: Female

DRUGS (3)
  1. CELEBREX [Suspect]
     Dosage: UNK
     Dates: start: 20121117
  2. LYRICA [Suspect]
     Dosage: UNK
     Dates: start: 20121117
  3. XALATAN [Suspect]
     Dosage: UNK
     Dates: start: 20121117

REACTIONS (2)
  - Influenza [Unknown]
  - Malaise [Unknown]
